FAERS Safety Report 5925820-3 (Version None)
Quarter: 2008Q4

REPORT INFORMATION
  Report Type: 
  Country: None (occurrence: None)
  Receive Date: 20081021
  Receipt Date: 20081010
  Transmission Date: 20090506
  Serious: Yes (Other)
  Sender: FDA-Public Use
  Company Number: US-PFIZER INC-2008085632

PATIENT
  Sex: Male
  Weight: 79.4 kg

DRUGS (4)
  1. LIPITOR [Suspect]
     Indication: BLOOD CHOLESTEROL INCREASED
     Dates: start: 20080320
  2. IBUPROFEN [Suspect]
     Indication: GINGIVITIS
     Dates: start: 20080926, end: 20081003
  3. ACETAMINOPHEN W/ PROPOXYPHENE HCL [Suspect]
     Indication: GINGIVITIS
     Dosage: TEXT:100/650MG QD EVERYDAY TDD:100/650MG
     Dates: start: 20080926, end: 20081003
  4. ACETYLSALICYLIC ACID SRT [Concomitant]

REACTIONS (4)
  - ALANINE AMINOTRANSFERASE [None]
  - ASPARTATE AMINOTRANSFERASE [None]
  - BLOOD ALKALINE PHOSPHATASE [None]
  - GINGIVITIS [None]
